FAERS Safety Report 18499714 (Version 1)
Quarter: 2020Q4

REPORT INFORMATION
  Report Type: Report from Study
  Country: None (occurrence: US)
  Receive Date: 20201112
  Receipt Date: 20201112
  Transmission Date: 20210114
  Serious: Yes (Hospitalization, Other)
  Sender: FDA-Public Use
  Company Number: US-ABBVIE-20K-163-3642351-00

PATIENT
  Age: 21 Year
  Sex: Male

DRUGS (1)
  1. VENCLEXTA [Suspect]
     Active Substance: VENETOCLAX
     Indication: ACUTE MYELOID LEUKAEMIA RECURRENT
     Route: 048
     Dates: start: 20201023

REACTIONS (7)
  - Abdominal pain upper [Unknown]
  - Platelet transfusion [Unknown]
  - Nausea [Unknown]
  - Platelet disorder [Unknown]
  - Lip swelling [Unknown]
  - Hospitalisation [Unknown]
  - Gastric disorder [Unknown]

NARRATIVE: CASE EVENT DATE: 2020
